FAERS Safety Report 9708772 (Version 3)
Quarter: 2013Q4

REPORT INFORMATION
  Report Type: Report from Study
  Country: NL (occurrence: NL)
  Receive Date: 20131125
  Receipt Date: 20131212
  Transmission Date: 20140711
  Serious: Yes (Hospitalization)
  Sender: FDA-Public Use
  Company Number: NL-GLAXOSMITHKLINE-Z0021641A

PATIENT
  Age: 62 Year
  Sex: Female
  Weight: 65 kg

DRUGS (2)
  1. DABRAFENIB [Suspect]
     Indication: NON-SMALL CELL LUNG CANCER
     Dosage: 150MG TWICE PER DAY
     Route: 048
     Dates: start: 20130709
  2. ACETYLSALICYLZUUR [Concomitant]
     Indication: ARTHRALGIA
     Dosage: 80MG FOUR TIMES PER DAY
     Route: 048
     Dates: start: 20131112

REACTIONS (1)
  - Transient ischaemic attack [Recovered/Resolved]
